FAERS Safety Report 8766878 (Version 1)
Quarter: 2012Q4

REPORT INFORMATION
  Report Type: 
  Country: US (occurrence: US)
  Receive Date: 20120903
  Receipt Date: 20120903
  Transmission Date: 20130627
  Serious: Yes (Other)
  Sender: FDA-Public Use
  Company Number: US-PFIZER INC-2012214580

PATIENT
  Age: 62 Year
  Sex: Female

DRUGS (2)
  1. SUTENT [Suspect]
     Indication: RENAL CELL CARCINOMA
     Dosage: 50 mg, UNK
     Dates: start: 20120803, end: 20120818
  2. AMLODIPINE [Concomitant]
     Indication: BLOOD PRESSURE
     Dosage: 5 mg, UNK

REACTIONS (5)
  - Haemorrhoidal haemorrhage [Unknown]
  - Pyrexia [Unknown]
  - Gingival pain [Unknown]
  - Nausea [Unknown]
  - Epistaxis [Unknown]
